FAERS Safety Report 9068932 (Version 1)
Quarter: 2013Q1

REPORT INFORMATION
  Report Type: Spontaneous
  Country: US (occurrence: US)
  Receive Date: 20130215
  Receipt Date: 20130215
  Transmission Date: 20140127
  Serious: Yes (Death)
  Sender: FDA-Public Use
  Company Number: US-BANPHARM-20130742

PATIENT
  Age: 31 Year
  Sex: Male

DRUGS (8)
  1. NAPROXEN [Suspect]
     Route: 048
  2. AMPHETAMINES (BATH SALTS) [Suspect]
  3. OXYCODONE [Suspect]
  4. ETHANOL [Suspect]
  5. LIDOCAINE [Suspect]
  6. MEPROBAMATE [Suspect]
  7. TOBACCO LEAF [Suspect]
  8. HYDROXYZINE [Suspect]

REACTIONS (4)
  - Cardio-respiratory arrest [Fatal]
  - Drug abuse [Fatal]
  - Cardiac arrest [None]
  - Respiratory arrest [None]
